FAERS Safety Report 23444599 (Version 1)
Quarter: 2024Q1

REPORT INFORMATION
  Report Type: Spontaneous
  Country: US (occurrence: None)
  Receive Date: 20240125
  Receipt Date: 20240125
  Transmission Date: 20240409
  Serious: No
  Sender: FDA-Public Use
  Company Number: None

PATIENT
  Age: 59 Year
  Sex: Male
  Weight: 90 kg

DRUGS (6)
  1. ROSUVASTATIN CALCIUM [Suspect]
     Active Substance: ROSUVASTATIN CALCIUM
     Indication: Blood cholesterol
     Dosage: OTHER QUANTITY : 1 TABLET(S);?FREQUENCY : DAILY;?
     Route: 048
  2. VITAMIN B12 [Concomitant]
     Active Substance: CYANOCOBALAMIN
  3. FISH OIL [Concomitant]
     Active Substance: FISH OIL
  4. C [Concomitant]
  5. D [Concomitant]
  6. MAGNESIUM [Concomitant]

REACTIONS (4)
  - Arthralgia [None]
  - Myalgia [None]
  - Depression [None]
  - Dermal cyst [None]

NARRATIVE: CASE EVENT DATE: 20240122
